FAERS Safety Report 17024589 (Version 1)
Quarter: 2019Q4

REPORT INFORMATION
  Report Type: Spontaneous
  Country: DE (occurrence: DE)
  Receive Date: 20191113
  Receipt Date: 20191113
  Transmission Date: 20200122
  Serious: Yes (Hospitalization, Other)
  Sender: FDA-Public Use
  Company Number: DE-AUROBINDO-AUR-APL-2019-072230

PATIENT
  Age: 16 Year
  Sex: Female
  Weight: 50 kg

DRUGS (3)
  1. CETIRIZINE [Suspect]
     Active Substance: CETIRIZINE HYDROCHLORIDE
     Indication: URTICARIA
     Dosage: 10 MILLIGRAM
     Route: 048
  2. PREDNISOLON [Suspect]
     Active Substance: PREDNISOLONE
     Indication: URTICARIA
     Dosage: 10 MILLIGRAM
     Route: 048
  3. ADVANTAN [Concomitant]
     Active Substance: METHYLPREDNISOLONE ACEPONATE
     Indication: URTICARIA
     Dosage: UNK
     Route: 061
     Dates: start: 20190721

REACTIONS (4)
  - Jaundice [Recovering/Resolving]
  - Hyperbilirubinaemia [Recovering/Resolving]
  - Chromaturia [Recovering/Resolving]
  - Rash [Recovering/Resolving]

NARRATIVE: CASE EVENT DATE: 20190721
